FAERS Safety Report 4504480-2 (Version None)
Quarter: 2004Q4

REPORT INFORMATION
  Report Type: 
  Country: None (occurrence: None)
  Receive Date: 20041116
  Receipt Date: 20041013
  Transmission Date: 20050328
  Serious: Yes (Death)
  Sender: FDA-Public Use
  Company Number: 2004-DE-05594DE

PATIENT
  Sex: 0

DRUGS (1)
  1. MIRAPEX [Suspect]
     Dosage: PO
     Route: 048

REACTIONS (1)
  - MYOCARDIAL INFARCTION [None]
